FAERS Safety Report 24591148 (Version 1)
Quarter: 2024Q4

REPORT INFORMATION
  Report Type: Spontaneous
  Country: US (occurrence: US)
  Receive Date: 20241107
  Receipt Date: 20241107
  Transmission Date: 20250115
  Serious: No
  Sender: ABBVIE
  Company Number: US-ABBVIE-5984285

PATIENT
  Sex: Female

DRUGS (2)
  1. LASTACAFT [Suspect]
     Active Substance: ALCAFTADINE
     Indication: Eye pruritus
     Route: 065
  2. LUMIFY [Concomitant]
     Active Substance: BRIMONIDINE TARTRATE
     Indication: Eye pruritus

REACTIONS (1)
  - Off label use [Unknown]
